FAERS Safety Report 7540866-X (Version None)
Quarter: 2011Q2

REPORT INFORMATION
  Report Type: 
  Country: None (occurrence: None)
  Receive Date: 20110610
  Receipt Date: 20110609
  Transmission Date: 20111010
  Serious: Yes (Hospitalization)
  Sender: FDA-Public Use
  Company Number: US-ABBOTT-11P-163-0730651-00

PATIENT
  Sex: Female
  Weight: 90.8 kg

DRUGS (13)
  1. VITAMIN B-12 [Concomitant]
     Indication: VITAMIN SUPPLEMENTATION
  2. MULTIVITAMIN WITH ZINC [Concomitant]
     Indication: VITAMIN SUPPLEMENTATION
  3. PENTASA [Concomitant]
     Indication: CROHN'S DISEASE
  4. FISH OIL [Concomitant]
     Indication: SUPPLEMENTATION THERAPY
  5. NEXIUM [Concomitant]
     Indication: GASTROOESOPHAGEAL REFLUX DISEASE
  6. CALCIUM CARBONATE [Concomitant]
     Indication: PRODUCT USED FOR UNKNOWN INDICATION
  7. METOPROLOL [Concomitant]
     Indication: HYPERTENSION
  8. ASPIRIN [Concomitant]
     Indication: CARDIOVASCULAR EVENT PROPHYLAXIS
  9. BETA CAROTENE [Concomitant]
     Indication: VITAMIN SUPPLEMENTATION
  10. VITAMIN D [Concomitant]
     Indication: VITAMIN SUPPLEMENTATION
  11. FLAGYL [Concomitant]
     Indication: CROHN'S DISEASE
  12. METHIMAZOLE [Concomitant]
     Indication: BASEDOW'S DISEASE
  13. HUMIRA [Suspect]
     Indication: CROHN'S DISEASE
     Dates: start: 20101101

REACTIONS (12)
  - FEELING HOT [None]
  - MALAISE [None]
  - PYREXIA [None]
  - SWELLING FACE [None]
  - ERYTHEMA [None]
  - DRY SKIN [None]
  - NASAL DRYNESS [None]
  - CELLULITIS [None]
  - EPISTAXIS [None]
  - DERMATITIS [None]
  - MUSCULAR WEAKNESS [None]
  - SKIN PAPILLOMA [None]
